FAERS Safety Report 16817465 (Version 3)
Quarter: 2019Q4

REPORT INFORMATION
  Report Type: Spontaneous
  Country: US (occurrence: US)
  Receive Date: 20190917
  Receipt Date: 20191007
  Transmission Date: 20200122
  Serious: No
  Sender: FDA-Public Use
  Company Number: US-PFIZER INC-2019395721

PATIENT
  Age: 64 Year
  Sex: Male

DRUGS (1)
  1. GABAPENTIN. [Suspect]
     Active Substance: GABAPENTIN
     Dosage: 800 MG, FOUR TIMES DAILY

REACTIONS (5)
  - Fall [Unknown]
  - Pain [Unknown]
  - Drug ineffective [Unknown]
  - Gait disturbance [Unknown]
  - Feeling drunk [Unknown]
